FAERS Safety Report 9602420 (Version 3)
Quarter: 2014Q2

REPORT INFORMATION
  Report Type: Report from Study
  Country: US (occurrence: US)
  Receive Date: 20131007
  Receipt Date: 20140407
  Transmission Date: 20141212
  Serious: Yes (Other)
  Sender: FDA-Public Use
  Company Number: US-SANOFI-AVENTIS-2013SA081604

PATIENT
  Age: 45 Year
  Sex: Female
  Weight: 79 kg

DRUGS (5)
  1. AUBAGIO [Suspect]
     Indication: MULTIPLE SCLEROSIS
     Route: 048
     Dates: start: 20130201
  2. SPIRONOLACTONE [Concomitant]
     Indication: ACNE
     Dates: start: 201108
  3. VITAMIN D [Concomitant]
     Indication: VITAMIN SUPPLEMENTATION
     Dosage: DOSE:5000 UNIT(S)
     Dates: start: 201010
  4. BIOTIN [Concomitant]
     Indication: VITAMIN SUPPLEMENTATION
     Dosage: DOSE:2500 UNIT(S)
     Dates: start: 20130501
  5. AMANTADINE [Concomitant]
     Indication: FATIGUE
     Dates: start: 201210, end: 201305

REACTIONS (2)
  - Intervertebral disc protrusion [Not Recovered/Not Resolved]
  - Alopecia [Recovering/Resolving]
